FAERS Safety Report 8283151-3 (Version None)
Quarter: 2012Q2

REPORT INFORMATION
  Report Type: 
  Country: None (occurrence: None)
  Receive Date: 20120413
  Receipt Date: 20120405
  Transmission Date: 20120825
  Serious: Yes (Hospitalization)
  Sender: FDA-Public Use
  Company Number: GB-GLAXOSMITHKLINE-B0792997A

PATIENT
  Sex: Male

DRUGS (6)
  1. ORAMORPH SR [Concomitant]
  2. FELODIPINE [Concomitant]
  3. VOTRIENT [Suspect]
     Indication: RENAL CELL CARCINOMA
     Dosage: 800MG PER DAY
     Route: 048
  4. INDAPAMIDE [Concomitant]
  5. MORPHINE [Concomitant]
  6. RAMIPRIL [Concomitant]

REACTIONS (2)
  - HYPONATRAEMIA [None]
  - HYPERCALCAEMIA [None]
